FAERS Safety Report 19012962 (Version 1)
Quarter: 2021Q1

REPORT INFORMATION
  Report Type: Spontaneous
  Country: US (occurrence: US)
  Receive Date: 20210315
  Receipt Date: 20210315
  Transmission Date: 20210420
  Serious: Yes (Hospitalization, Other)
  Sender: FDA-Public Use
  Company Number: US-AMNEAL PHARMACEUTICALS-2021-AMRX-00804

PATIENT
  Age: 48 Year
  Sex: Female
  Weight: 116 kg

DRUGS (11)
  1. VITAMIN D [COLECALCIFEROL] [Concomitant]
     Active Substance: CHOLECALCIFEROL
     Indication: VITAMIN D DECREASED
     Dosage: 50000 IU INTERNATIONAL UNIT(S), 1 /WEEK
     Route: 048
     Dates: start: 20190531
  2. TYLENOL [Concomitant]
     Active Substance: ACETAMINOPHEN
     Indication: DYSMENORRHOEA
     Dosage: 1000 MILLIGRAM, AS REQUIRED
     Route: 065
     Dates: start: 20200109, end: 20200110
  3. ELAGOLIX [Suspect]
     Active Substance: ELAGOLIX
     Dosage: 300 MILLIGRAM, 1 /DAY
     Route: 048
     Dates: start: 20190819, end: 20200720
  4. ELAGOLIX [Suspect]
     Active Substance: ELAGOLIX
     Dosage: 300 MILLIGRAM, 1 /DAY
     Route: 048
     Dates: start: 20200722
  5. ACTIVELLA [Suspect]
     Active Substance: ESTRADIOL\NORETHINDRONE ACETATE
     Indication: UTERINE LEIOMYOMA
     Dosage: 1 DOSAGE FORM, 1 /DAY
     Route: 048
     Dates: start: 20190819, end: 20200720
  6. ACTIVELLA [Suspect]
     Active Substance: ESTRADIOL\NORETHINDRONE ACETATE
     Dosage: 1 DOSAGE FORM, 1 /DAY
     Route: 048
     Dates: start: 20200722
  7. ELAGOLIX [Suspect]
     Active Substance: ELAGOLIX
     Indication: UTERINE LEIOMYOMA
     Dosage: 300 MILLIGRAM, 1 /DAY
     Route: 048
     Dates: start: 20190819, end: 20200720
  8. DIFLUCAN [Concomitant]
     Active Substance: FLUCONAZOLE
     Indication: FUNGAL INFECTION
     Dosage: 150 MILLIGRAM, AS REQUIRED
     Route: 048
     Dates: start: 20190522
  9. ELAGOLIX [Suspect]
     Active Substance: ELAGOLIX
     Dosage: 300 MILLIGRAM, 1 /DAY
     Route: 048
     Dates: start: 20200722
  10. OMEPRAZOLE. [Concomitant]
     Active Substance: OMEPRAZOLE
     Indication: GASTROOESOPHAGEAL REFLUX DISEASE
     Dosage: 20 MILLIGRAM, 1 /DAY
     Route: 065
     Dates: start: 201209
  11. TYLENOL [Concomitant]
     Active Substance: ACETAMINOPHEN
     Indication: MIGRAINE
     Dosage: 1000 MILLIGRAM, AS REQUIRED
     Route: 065
     Dates: start: 2014

REACTIONS (1)
  - Thyroid mass [Not Recovered/Not Resolved]

NARRATIVE: CASE EVENT DATE: 20200721
